FAERS Safety Report 10771310 (Version 3)
Quarter: 2015Q1

REPORT INFORMATION
  Report Type: Spontaneous
  Country: JP (occurrence: JP)
  Receive Date: 20150206
  Receipt Date: 20150317
  Transmission Date: 20150721
  Serious: Yes (Hospitalization)
  Sender: FDA-Public Use
  Company Number: JP-B.I. PHARMACEUTICALS,INC./RIDGEFIELD-2015-BI-06067NB

PATIENT
  Age: 70 Year
  Sex: Male
  Weight: 68.7 kg

DRUGS (7)
  1. DAIKENCHUTO [Concomitant]
     Active Substance: HERBALS
     Indication: CHRONIC GASTRITIS
     Dosage: 3 ANZ
     Route: 048
     Dates: start: 20131226
  2. MINOMYCIN [Concomitant]
     Active Substance: MINOCYCLINE HYDROCHLORIDE
     Indication: PROPHYLAXIS
     Dosage: 100 MG
     Route: 048
     Dates: start: 20150130
  3. BROTIZOLAM [Concomitant]
     Active Substance: BROTIZOLAM
     Indication: INSOMNIA
     Dosage: 0.25 MG
     Route: 048
  4. URSO [Concomitant]
     Active Substance: URSODIOL
     Indication: CHRONIC GASTRITIS
     Dosage: 100 MG
     Route: 048
     Dates: start: 20131226
  5. GILOTRIF [Suspect]
     Active Substance: AFATINIB
     Indication: LUNG ADENOCARCINOMA
     Dosage: 30 MG
     Route: 048
     Dates: start: 20150203
  6. GASTER [Concomitant]
     Active Substance: FAMOTIDINE
     Indication: CHRONIC GASTRITIS
     Dosage: 20 MG
     Route: 048
     Dates: start: 20131226
  7. LOPERAMIDE [Concomitant]
     Active Substance: LOPERAMIDE
     Indication: DIARRHOEA
     Route: 048
     Dates: start: 20150130

REACTIONS (1)
  - Syncope [Recovered/Resolved]

NARRATIVE: CASE EVENT DATE: 20150204
